FAERS Safety Report 11677076 (Version 1)
Quarter: 2015Q4

REPORT INFORMATION
  Report Type: Spontaneous
  Country: US (occurrence: US)
  Receive Date: 20151027
  Receipt Date: 20151027
  Transmission Date: 20160304
  Serious: No
  Sender: FDA-Public Use
  Company Number: US-ELI_LILLY_AND_COMPANY-US201004006869

PATIENT
  Age: 64 Year
  Sex: Female

DRUGS (17)
  1. LUNESTA [Concomitant]
     Active Substance: ESZOPICLONE
  2. AMLODIPINE [Concomitant]
     Active Substance: AMLODIPINE BESYLATE
  3. ASPIRIN                            /00002701/ [Concomitant]
     Active Substance: ASPIRIN
  4. FORTEO [Suspect]
     Active Substance: TERIPARATIDE
     Dosage: 20 UG, DAILY (1/D)
  5. LOSTATIN [Concomitant]
  6. TOPIMAX                            /00949801/ [Concomitant]
     Active Substance: PREDNICARBATE
  7. OPRAZOLE [Concomitant]
  8. LEVOXYL [Concomitant]
     Active Substance: LEVOTHYROXINE SODIUM
  9. FORTEO [Suspect]
     Active Substance: TERIPARATIDE
     Indication: OSTEOPOROSIS
     Dosage: 20 UG, DAILY (1/D)
  10. LORATADINE. [Concomitant]
     Active Substance: LORATADINE
  11. SPIRIVA [Concomitant]
     Active Substance: TIOTROPIUM BROMIDE MONOHYDRATE
  12. FORTEO [Suspect]
     Active Substance: TERIPARATIDE
     Dosage: 20 UG, DAILY (1/D)
  13. GALANTAMINE. [Concomitant]
     Active Substance: GALANTAMINE
  14. MEDRONATE DISODIUM [Concomitant]
     Active Substance: MEDRONATE DISODIUM
  15. ZOLOFT [Concomitant]
     Active Substance: SERTRALINE HYDROCHLORIDE
     Dosage: 200 MG, UNK
  16. NIASPAN [Concomitant]
     Active Substance: NIACIN
  17. LYRICA [Concomitant]
     Active Substance: PREGABALIN

REACTIONS (9)
  - Urine flow decreased [Unknown]
  - Malaise [Unknown]
  - Diarrhoea [Not Recovered/Not Resolved]
  - Crohn^s disease [Unknown]
  - Foot fracture [Unknown]
  - Feeling abnormal [Unknown]
  - Gastrointestinal motility disorder [Unknown]
  - Injection site haemorrhage [Recovered/Resolved]
  - Insomnia [Unknown]

NARRATIVE: CASE EVENT DATE: 2010
